FAERS Safety Report 16770110 (Version 2)
Quarter: 2019Q3

REPORT INFORMATION
  Report Type: Spontaneous
  Country: DE (occurrence: DE)
  Receive Date: 20190904
  Receipt Date: 20190930
  Transmission Date: 20191005
  Serious: Yes (Life-Threatening, Hospitalization)
  Sender: FDA-Public Use
  Company Number: DE-AUROBINDO-AUR-APL-2019-044532

PATIENT
  Age: 14 Year
  Sex: Female
  Weight: 61.8 kg

DRUGS (5)
  1. CERITINIB [Suspect]
     Active Substance: CERITINIB
     Indication: ANAPLASTIC LYMPHOMA KINASE GENE MUTATION
     Dosage: 750 MILLIGRAM, ONCE A DAY
     Route: 048
     Dates: start: 20170810, end: 20190702
  2. QUETIAPINE. [Suspect]
     Active Substance: QUETIAPINE
     Dosage: 62.2 MILLIGRAM PER MILLILITRE
     Route: 065
     Dates: start: 20190704
  3. LANSOPRAZOLE. [Concomitant]
     Active Substance: LANSOPRAZOLE
     Indication: OESOPHAGITIS
     Dosage: 30 MILLIGRAM, ONCE A DAY
     Route: 048
     Dates: start: 20190312, end: 20190702
  4. QUETIAPINE. [Suspect]
     Active Substance: QUETIAPINE
     Dosage: 889.5 MILLIGRAM PER LITRE
     Route: 065
     Dates: start: 20190703
  5. QUETIAPINE. [Suspect]
     Active Substance: QUETIAPINE
     Indication: PRODUCT USED FOR UNKNOWN INDICATION
     Dosage: UNK
     Route: 065
     Dates: start: 20190702

REACTIONS (3)
  - Somnolence [Recovered/Resolved]
  - Overdose [Recovered/Resolved]
  - Intentional self-injury [Recovered/Resolved]

NARRATIVE: CASE EVENT DATE: 20190702
